FAERS Safety Report 4581500-0 (Version None)
Quarter: 2005Q1

REPORT INFORMATION
  Report Type: 
  Country: None (occurrence: None)
  Receive Date: 20050127
  Receipt Date: 20040824
  Transmission Date: 20050727
  Serious: No
  Sender: FDA-Public Use
  Company Number: USA040876307

PATIENT
  Age: 54 Year
  Sex: Female

DRUGS (4)
  1. STRATTERA [Suspect]
     Indication: ATTENTION DEFICIT/HYPERACTIVITY DISORDER
     Dosage: 80 MG/1 DAY
     Dates: start: 20040701, end: 20040819
  2. XANAX (ALPRAZOLAM DUM) [Concomitant]
  3. SULFATRIM [Concomitant]
  4. AZO GANTRISIN [Concomitant]

REACTIONS (10)
  - DYSURIA [None]
  - FEELING ABNORMAL [None]
  - HYPERACUSIS [None]
  - NAUSEA [None]
  - PARAESTHESIA [None]
  - PHOTOPHOBIA [None]
  - PILOERECTION [None]
  - POSTNASAL DRIP [None]
  - PRODUCTIVE COUGH [None]
  - URINARY TRACT INFECTION [None]
